FAERS Safety Report 9233616 (Version 1)
Quarter: 2013Q2

REPORT INFORMATION
  Report Type: Spontaneous
  Country: US (occurrence: US)
  Receive Date: 20130416
  Receipt Date: 20130416
  Transmission Date: 20140414
  Serious: No
  Sender: FDA-Public Use
  Company Number: US-BANPHARM-20130562

PATIENT
  Age: 46 Year
  Sex: Female

DRUGS (1)
  1. NAPROXEN SODIUM 220MG [Suspect]
     Indication: ACCIDENTAL EXPOSURE TO PRODUCT
     Dosage: 2 DF, PRN,
     Route: 048
     Dates: start: 201210, end: 201301

REACTIONS (3)
  - Somnolence [Not Recovered/Not Resolved]
  - Wrong drug administered [Unknown]
  - Product commingling [Unknown]
